FAERS Safety Report 7049156-5 (Version None)
Quarter: 2010Q4

REPORT INFORMATION
  Report Type: 
  Country: None (occurrence: None)
  Receive Date: 20101018
  Receipt Date: 20101006
  Transmission Date: 20110411
  Serious: Yes (Hospitalization, Other)
  Sender: FDA-Public Use
  Company Number: PHHY2010TW62920

PATIENT
  Sex: Female
  Weight: 41.1 kg

DRUGS (2)
  1. ALISKIREN/AMOLODIPINE BESYLATE/HYDROCHLOROTHIAZIDE [Suspect]
     Indication: HYPERTENSION
     Dosage: 75 MG OD
     Route: 048
     Dates: start: 20100903
  2. SULINDAC [Suspect]

REACTIONS (6)
  - ACARODERMATITIS [None]
  - ALANINE AMINOTRANSFERASE INCREASED [None]
  - COUGH [None]
  - PYREXIA [None]
  - RASH ERYTHEMATOUS [None]
  - RASH PRURITIC [None]
